FAERS Safety Report 14653693 (Version 1)
Quarter: 2018Q1

REPORT INFORMATION
  Report Type: Spontaneous
  Country: US (occurrence: US)
  Receive Date: 20180319
  Receipt Date: 20180319
  Transmission Date: 20180509
  Serious: No
  Sender: FDA-Public Use
  Company Number: US-PFIZER INC-2018107618

PATIENT
  Sex: Female

DRUGS (1)
  1. GABAPENTIN. [Suspect]
     Active Substance: GABAPENTIN
     Indication: PAIN
     Dosage: UNK

REACTIONS (5)
  - Coordination abnormal [Unknown]
  - Feeling abnormal [Unknown]
  - Asthenia [Unknown]
  - Migraine [Unknown]
  - Product use in unapproved indication [Unknown]
